FAERS Safety Report 9682144 (Version 2)
Quarter: 2014Q4

REPORT INFORMATION
  Report Type: Report from Study
  Country: US (occurrence: US)
  Receive Date: 20131111
  Receipt Date: 20141117
  Transmission Date: 20150529
  Serious: Yes (Hospitalization, Other)
  Sender: FDA-Public Use
  Company Number: US-ROCHE-1299171

PATIENT
  Age: 9 Year
  Sex: Female

DRUGS (21)
  1. IBUPROFEN. [Concomitant]
     Active Substance: IBUPROFEN
     Indication: PYREXIA
  2. ALBUTEROL. [Concomitant]
     Active Substance: ALBUTEROL
     Dosage: 108 MCG/ACT INHALER
     Route: 065
  3. ORAPRED [Concomitant]
     Active Substance: PREDNISOLONE SODIUM PHOSPHATE
     Dosage: 15MG/5 ML SOLUTION TAKE 20 ML
     Route: 048
  4. ARIPIPRAZOLE. [Concomitant]
     Active Substance: ARIPIPRAZOLE
     Dosage: TAKE 0.5
     Route: 048
  5. IBUPROFEN. [Concomitant]
     Active Substance: IBUPROFEN
     Indication: PAIN
     Dosage: 100MG/5ML SUSPENSION TAKE 20 ML
     Route: 048
  6. KETOTIFEN [Concomitant]
     Active Substance: KETOTIFEN
     Dosage: 0.025% OPTHALMIC SOLUTION
     Route: 065
  7. EPINEPHRINE. [Concomitant]
     Active Substance: EPINEPHRINE
     Dosage: 0.3 MG PER 0.3 ML AUTOINJECTOR
     Route: 030
  8. OMEPRAZOLE. [Concomitant]
     Active Substance: OMEPRAZOLE
     Dosage: ^GRANULES SHOULD NOT BE CHEWED OR CRUSHED^
     Route: 048
  9. CLONIDINE. [Concomitant]
     Active Substance: CLONIDINE
     Dosage: TAKE 0.5
     Route: 048
  10. BENADRYL [Concomitant]
     Active Substance: DIPHENHYDRAMINE HYDROCHLORIDE
     Indication: HYPERSENSITIVITY
  11. GUANFACINE. [Concomitant]
     Active Substance: GUANFACINE
     Dosage: EXTENDED RELEASE
     Route: 048
  12. POLYETHYLENE GLYCOL [Concomitant]
     Active Substance: POLYETHYLENE GLYCOLS
     Dosage: TAKE 17 GRAMS
     Route: 048
  13. FLUTICASONE PROPIONATE/SALMETEROL [Concomitant]
     Active Substance: FLUTICASONE PROPIONATE\SALMETEROL XINAFOATE
     Dosage: 230-21 MCG/ACT INHALER
     Route: 065
  14. DESONIDE. [Concomitant]
     Active Substance: DESONIDE
     Dosage: 0.05% OINTMENT
     Route: 065
  15. FLUTICASONE PROPIONATE. [Concomitant]
     Active Substance: FLUTICASONE PROPIONATE
     Dosage: 50MCG/ACT NASAL SPRAY GIVE 2 SPRAYS
     Route: 065
  16. XOLAIR [Suspect]
     Active Substance: OMALIZUMAB
     Indication: ASTHMA
     Route: 065
     Dates: start: 20130114
  17. HYDROCORTISONE. [Concomitant]
     Active Substance: HYDROCORTISONE
     Dosage: 2.5% OINTMENT
     Route: 065
  18. BENADRYL [Concomitant]
     Active Substance: DIPHENHYDRAMINE HYDROCHLORIDE
     Indication: PRURITUS
     Route: 048
  19. AQUAFOR [Concomitant]
     Route: 065
  20. MONTELUKAST [Concomitant]
     Active Substance: MONTELUKAST SODIUM
     Dosage: CHEW ONE TABLET EVERY EVENING
     Route: 048
  21. SERTRALINE [Concomitant]
     Active Substance: SERTRALINE HYDROCHLORIDE
     Route: 048

REACTIONS (19)
  - Status asthmaticus [Recovering/Resolving]
  - Aggression [Unknown]
  - Abnormal weight gain [Unknown]
  - Acanthosis nigricans [Unknown]
  - Attention deficit/hyperactivity disorder [Unknown]
  - Asthenia [Unknown]
  - Enuresis [Unknown]
  - Eczema [Unknown]
  - Oppositional defiant disorder [Unknown]
  - Abdominal pain [Unknown]
  - Coordination abnormal [Unknown]
  - Arthralgia [Unknown]
  - Mobility decreased [Unknown]
  - Pain [Unknown]
  - Muscular weakness [Unknown]
  - Respiratory distress [Unknown]
  - Influenza [Unknown]
  - Astigmatism [Unknown]
  - Asthma [Unknown]

NARRATIVE: CASE EVENT DATE: 20131028
